FAERS Safety Report 18642533 (Version 12)
Quarter: 2022Q2

REPORT INFORMATION
  Report Type: Report from Study
  Country: GB (occurrence: None)
  Receive Date: 20201221
  Receipt Date: 20220602
  Transmission Date: 20220720
  Serious: Yes (Hospitalization)
  Sender: FDA-Public Use
  Company Number: GB-ROCHE-2729658

PATIENT
  Age: 43 Year
  Sex: Female
  Weight: 96.9 kg

DRUGS (16)
  1. ATEZOLIZUMAB [Suspect]
     Active Substance: ATEZOLIZUMAB
     Indication: Triple negative breast cancer
     Dosage: START DATE OF MOST RECENT DOSE OF STUDY DRUG 1200 MG PRIOR TO AE: 24/NOV/2020?ON 09/FEB/2021, SHE RE
     Route: 041
     Dates: start: 20201103
  2. SACITUZUMAB GOVITECAN [Suspect]
     Active Substance: SACITUZUMAB GOVITECAN
     Indication: Triple negative breast cancer
     Dosage: START DATE OF MOST RECENT DOSE OF STUDY DRUG 1030 MG PRIOR TO AE: 01/DEC/2020.?ON 16/FEB/2021, SHE R
     Route: 042
     Dates: start: 20201103
  3. LANSOPRAZOLE [Concomitant]
     Active Substance: LANSOPRAZOLE
     Indication: Gastritis
     Route: 048
     Dates: start: 20201124
  4. FILGRASTIM [Concomitant]
     Active Substance: FILGRASTIM
     Indication: Neutropenia
     Route: 058
     Dates: start: 20201208, end: 20201211
  5. FILGRASTIM [Concomitant]
     Active Substance: FILGRASTIM
     Dosage: 5 OTHER
     Route: 058
     Dates: start: 20210105
  6. AMITRIPTYLINE [Concomitant]
     Active Substance: AMITRIPTYLINE
     Indication: Pain
     Route: 048
     Dates: start: 202009
  7. GABAPENTIN [Concomitant]
     Active Substance: GABAPENTIN
     Indication: Pain
     Route: 048
     Dates: start: 202009
  8. ONDANSETRON [Concomitant]
     Active Substance: ONDANSETRON
     Indication: Premedication
     Route: 042
     Dates: start: 20201103
  9. CHLORPHENIRAMINE MALEATE [Concomitant]
     Active Substance: CHLORPHENIRAMINE MALEATE
     Indication: Premedication
     Route: 042
     Dates: start: 20201103
  10. RANITIDINE [Concomitant]
     Active Substance: RANITIDINE
     Indication: Premedication
     Route: 042
     Dates: start: 20201103
  11. OLAPARIB [Concomitant]
     Active Substance: OLAPARIB
  12. PACLITAXEL [Concomitant]
     Active Substance: PACLITAXEL
  13. CARBOPLATIN [Concomitant]
     Active Substance: CARBOPLATIN
  14. EPIRUBICIN [Concomitant]
     Active Substance: EPIRUBICIN
  15. CYCLOPHOSPHAMIDE [Concomitant]
     Active Substance: CYCLOPHOSPHAMIDE
  16. CAPECITABINE [Concomitant]
     Active Substance: CAPECITABINE

REACTIONS (1)
  - Enteritis [Recovered/Resolved]

NARRATIVE: CASE EVENT DATE: 20201203
